FAERS Safety Report 22291620 (Version 1)
Quarter: 2023Q2

REPORT INFORMATION
  Report Type: Report from Study
  Country: FR (occurrence: FR)
  Receive Date: 20230507
  Receipt Date: 20230507
  Transmission Date: 20230722
  Serious: Yes (Other)
  Sender: FDA-Public Use
  Company Number: FR-002147023-NVSC2023FR090287

PATIENT
  Age: 61 Year
  Sex: Female

DRUGS (3)
  1. PREDNISONE [Suspect]
     Active Substance: PREDNISONE
     Indication: Henoch-Schonlein purpura
     Dosage: 1 MILLIGRAM/KILOGRAM, ONCE A DAY
     Route: 065
  2. PREDNISONE [Suspect]
     Active Substance: PREDNISONE
     Indication: Vasculitis necrotising
  3. PREDNISONE [Suspect]
     Active Substance: PREDNISONE
     Indication: Antineutrophil cytoplasmic antibody negative

REACTIONS (6)
  - Klebsiella infection [Unknown]
  - Campylobacter infection [Unknown]
  - Colitis [Unknown]
  - Eschar [Unknown]
  - Behaviour disorder [Unknown]
  - Insomnia [Unknown]
